FAERS Safety Report 26202554 (Version 1)
Quarter: 2025Q4

REPORT INFORMATION
  Report Type: Spontaneous
  Country: BR (occurrence: BR)
  Receive Date: 20251226
  Receipt Date: 20251226
  Transmission Date: 20260117
  Serious: Yes (Death)
  Sender: BIOGEN
  Company Number: BR-BIOGEN-2096707

PATIENT
  Age: 34 Year

DRUGS (1)
  1. TYSABRI [Suspect]
     Active Substance: NATALIZUMAB
     Indication: Multiple sclerosis
     Dosage: DOSE AND FREQUENCY NOT ASKED.

REACTIONS (1)
  - Death [Fatal]

NARRATIVE: CASE EVENT DATE: 20250910
